FAERS Safety Report 24087055 (Version 2)
Quarter: 2024Q3

REPORT INFORMATION
  Report Type: Spontaneous
  Country: US (occurrence: None)
  Receive Date: 20240713
  Receipt Date: 20240820
  Transmission Date: 20241016
  Serious: No
  Sender: ASTRAZENECA
  Company Number: 2024A156441

PATIENT
  Sex: Female

DRUGS (1)
  1. SAPHNELO [Suspect]
     Active Substance: ANIFROLUMAB-FNIA

REACTIONS (5)
  - Poor quality sleep [Unknown]
  - Brain fog [Unknown]
  - Multiple allergies [Unknown]
  - Cardiac disorder [Unknown]
  - Product preparation issue [Unknown]
